FAERS Safety Report 6594610-3 (Version None)
Quarter: 2010Q1

REPORT INFORMATION
  Report Type: 
  Country: None (occurrence: None)
  Receive Date: 20100222
  Receipt Date: 20090328
  Transmission Date: 20100710
  Serious: No
  Sender: FDA-Public Use
  Company Number: US-BRISTOL-MYERS SQUIBB COMPANY-14553374

PATIENT
  Age: 74 Year
  Sex: Female

DRUGS (1)
  1. TAXOL [Suspect]
     Dates: start: 20050101

REACTIONS (1)
  - HYPERSENSITIVITY [None]
